FAERS Safety Report 23723569 (Version 3)
Quarter: 2024Q3

REPORT INFORMATION
  Report Type: Spontaneous
  Country: US (occurrence: US)
  Receive Date: 20240409
  Receipt Date: 20240805
  Transmission Date: 20241016
  Serious: No
  Sender: SANOFI AVENTIS
  Company Number: US-SA-SAC20240404001131

PATIENT
  Age: 44 Year
  Sex: Male

DRUGS (16)
  1. DUPIXENT [Suspect]
     Active Substance: DUPILUMAB
     Indication: Dermatitis atopic
     Dosage: 300 MG, QOW
     Route: 058
     Dates: start: 20231010
  2. ALDOSTERONE [Concomitant]
     Active Substance: ALDOSTERONE
  3. EPIDUO [Concomitant]
     Active Substance: ADAPALENE\BENZOYL PEROXIDE
  4. EPINEPHRINE [Concomitant]
     Active Substance: EPINEPHRINE
  5. EUCRISA [Concomitant]
     Active Substance: CRISABOROLE
  6. HALOBETASOL [Concomitant]
     Active Substance: HALOBETASOL
  7. HYDROXYZINE HYDROCHLORIDE [Concomitant]
     Active Substance: HYDROXYZINE HYDROCHLORIDE
  8. MOMETASONE [Concomitant]
     Active Substance: MOMETASONE
  9. ONEXTON [Concomitant]
     Active Substance: BENZOYL PEROXIDE\CLINDAMYCIN PHOSPHATE
  10. PREDNISONE [Concomitant]
     Active Substance: PREDNISONE
  11. TACROLIMUS [Concomitant]
     Active Substance: TACROLIMUS
  12. XYZAL [Concomitant]
     Active Substance: LEVOCETIRIZINE DIHYDROCHLORIDE
  13. TRIAMCINOLONE ACETONIDE [Concomitant]
     Active Substance: TRIAMCINOLONE ACETONIDE
  14. DERMA-SMOOTHE/FS [Concomitant]
     Active Substance: FLUOCINOLONE ACETONIDE
  15. ALCLOMETASONE [Concomitant]
     Active Substance: ALCLOMETASONE
  16. TRIAMCINOLONE [Concomitant]
     Active Substance: TRIAMCINOLONE
     Dosage: UNK

REACTIONS (1)
  - Sleep disorder due to a general medical condition [Unknown]
